FAERS Safety Report 17923123 (Version 2)
Quarter: 2021Q2

REPORT INFORMATION
  Report Type: Spontaneous
  Country: IT (occurrence: IT)
  Receive Date: 20200622
  Receipt Date: 20210628
  Transmission Date: 20210717
  Serious: Yes (Hospitalization)
  Sender: FDA-Public Use
  Company Number: IT-TEVA-2020-IT-1790121

PATIENT
  Age: 64 Year
  Sex: Male

DRUGS (6)
  1. ONDANSETRON [Concomitant]
     Active Substance: ONDANSETRON
     Dosage: DILUTED IN 5% GLUCOSE 100ML PERIPHERAL VASCULAR INTERVENTION (PVI)
     Route: 050
     Dates: start: 20160104
  2. GLUCOSE [Suspect]
     Active Substance: DEXTROSE
     Dosage: 500ML PERIPHERAL VASCULAR INTERVENTION (OXALIPLATIN DILUTED IN 5% GLUCOSE 500ML PVI)
     Route: 050
     Dates: start: 20160104
  3. GLUCOSE [Suspect]
     Active Substance: DEXTROSE
     Dosage: 100ML PERIPHERAL VASCULAR INTERVENTION (WASH)
     Route: 050
     Dates: start: 20160104
  4. DEXAMETHASONE. [Concomitant]
     Active Substance: DEXAMETHASONE
     Dosage: DILUTED IN 5% GLUCOSE 100ML PERIPHERAL VASCULAR INTERVENTION (PVI)
     Route: 050
     Dates: start: 20160104
  5. CAPECITABINE. [Suspect]
     Active Substance: CAPECITABINE
     Indication: COLORECTAL CANCER STAGE III
     Dosage: RECEIVED TOTAL 8 CYCLES OF CHEMOTHERAPY
     Route: 065
     Dates: start: 20160104
  6. OXALIPLATIN. [Suspect]
     Active Substance: OXALIPLATIN
     Indication: COLORECTAL CANCER STAGE III
     Dosage: DILUTED IN 5% GLUCOSE 500ML PERIPHERAL VASCULAR INTERVENTION (PVI), CYCLES: 25?JAN?2016, 15?FEB?2016
     Route: 050
     Dates: start: 20160104

REACTIONS (6)
  - Diarrhoea [Recovered/Resolved]
  - Aphonia [Recovered/Resolved]
  - Hypokalaemia [Recovered/Resolved]
  - Peripheral sensorimotor neuropathy [Recovered/Resolved]
  - Blood calcium decreased [Recovered/Resolved]
  - Dyspnoea [Recovered/Resolved]

NARRATIVE: CASE EVENT DATE: 2016
